FAERS Safety Report 4329373-5 (Version None)
Quarter: 2004Q1

REPORT INFORMATION
  Report Type: 
  Country: None (occurrence: None)
  Receive Date: 20040331
  Receipt Date: 20040331
  Transmission Date: 20041129
  Serious: Yes (Hospitalization, Other)
  Sender: FDA-Public Use
  Company Number: None

PATIENT
  Age: 72 Year
  Sex: Female
  Weight: 70.7611 kg

DRUGS (3)
  1. BUPIVACAINE [Suspect]
     Indication: PAIN
     Dosage: 2 ML/HR WITH /ML BOLUS
     Route: 040
     Dates: start: 20030707, end: 20030715
  2. DEMEROL [Suspect]
     Indication: PAIN
     Dosage: Q 45 MIN WITH PAIN PUMP-} 400 CC TOTAL OVER 8 DAYS
     Dates: start: 20030707, end: 20030715
  3. VIOXX [Concomitant]

REACTIONS (2)
  - HEPATITIS [None]
  - MEDICAL DEVICE COMPLICATION [None]
